FAERS Safety Report 22636713 (Version 1)
Quarter: 2023Q2

REPORT INFORMATION
  Report Type: Spontaneous
  Country: US (occurrence: None)
  Receive Date: 20230621
  Receipt Date: 20230621
  Transmission Date: 20230721
  Serious: Yes (Hospitalization)
  Sender: FDA-Public Use
  Company Number: None

PATIENT
  Sex: Female

DRUGS (38)
  1. GLATIRAMER [Suspect]
     Active Substance: GLATIRAMER
     Indication: Multiple sclerosis
     Dosage: 40 MG/ML  SUBCUTANEOUS??INJECT 40 MG UNDER THE SKIN (SUBCUTANEOUS INJECTION) THREE TIMES PER WEEK
     Dates: start: 20181107
  2. AMLODIPINE [Concomitant]
     Active Substance: AMLODIPINE BESYLATE
  3. ASPIRIN [Concomitant]
  4. ATORVASTATIN [Concomitant]
     Active Substance: ATORVASTATIN
  5. BACLOFEN [Concomitant]
     Active Substance: BACLOFEN
  6. BACLOFEN [Concomitant]
     Active Substance: BACLOFEN
  7. BUPROPHN HCL [Concomitant]
  8. CALCIUM [Concomitant]
  9. CALCCIUM/D [Concomitant]
  10. COENZYME Q10 [Concomitant]
     Active Substance: DIETARY SUPPLEMENT\UBIDECARENONE
  11. CYCLOBENZAPRINE [Concomitant]
     Active Substance: CYCLOBENZAPRINE
  12. DOCUSATE SOD [Concomitant]
  13. EMGALITY [Concomitant]
  14. GUAIFENESIN [Concomitant]
  15. ACETAMINOPHEN\HYDROCODONE [Concomitant]
     Active Substance: ACETAMINOPHEN\HYDROCODONE
  16. IBUPROFEN [Concomitant]
     Active Substance: IBUPROFEN
  17. KETOROLAC [Concomitant]
     Active Substance: KETOROLAC TROMETHAMINE
  18. LETROZOLE [Concomitant]
     Active Substance: LETROZOLE
  19. LISINOPRIL AND HYDROCHLOROTHIAZIDE [Concomitant]
     Active Substance: HYDROCHLOROTHIAZIDE\LISINOPRIL
  20. MECLIZINE [Concomitant]
     Active Substance: MECLIZINE HYDROCHLORIDE
  21. MIRTAZAPINE [Concomitant]
     Active Substance: MIRTAZAPINE
  22. NAPROXEN [Concomitant]
     Active Substance: NAPROXEN
  23. NARATRIPTAN [Concomitant]
     Active Substance: NARATRIPTAN HYDROCHLORIDE
  24. NURTEC [Concomitant]
  25. OMEPRAZOLE [Concomitant]
     Active Substance: OMEPRAZOLE
  26. OMEPRAZOLE [Concomitant]
     Active Substance: OMEPRAZOLE
  27. ONDANSETRON [Concomitant]
     Active Substance: ONDANSETRON
  28. OXCARBAZEPINE [Concomitant]
     Active Substance: OXCARBAZEPINE
  29. PROCHLORPER [Concomitant]
  30. PROPRANOLOL [Concomitant]
     Active Substance: PROPRANOLOL HYDROCHLORIDE
  31. PROPRANOLOL [Concomitant]
     Active Substance: PROPRANOLOL HYDROCHLORIDE
  32. SUDAFED CONG [Concomitant]
  33. SUMATRIPTAN [Concomitant]
     Active Substance: SUMATRIPTAN
  34. TIZANIDINE [Concomitant]
     Active Substance: TIZANIDINE
  35. TRAZODONE [Concomitant]
     Active Substance: TRAZODONE HYDROCHLORIDE
  36. VENTOLIN HFA AER [Concomitant]
  37. VIIBRYD [Concomitant]
  38. VITAMIN D3 [Concomitant]
     Active Substance: CHOLECALCIFEROL

REACTIONS (1)
  - Hospitalisation [None]
